FAERS Safety Report 12423438 (Version 1)
Quarter: 2016Q2

REPORT INFORMATION
  Report Type: Spontaneous
  Country: US (occurrence: None)
  Receive Date: 20160531
  Receipt Date: 20160531
  Transmission Date: 20160815
  Serious: No
  Sender: FDA-Public Use
  Company Number: None

PATIENT
  Age: 59 Year
  Sex: Female
  Weight: 77.11 kg

DRUGS (1)
  1. CIPROFLOXIN HCL [Suspect]
     Active Substance: CIPROFLOXACIN HYDROCHLORIDE
     Indication: CYSTITIS
     Dosage: 2 TABLET(S) TWICE A DAY TAKEN BY MOUTH
     Route: 048
     Dates: start: 20150921, end: 20150922

REACTIONS (12)
  - Headache [None]
  - Arthralgia [None]
  - Crying [None]
  - Pain in extremity [None]
  - Tinnitus [None]
  - Joint crepitation [None]
  - Tendon pain [None]
  - Pain in jaw [None]
  - Pyrexia [None]
  - Musculoskeletal stiffness [None]
  - Fatigue [None]
  - Muscular weakness [None]

NARRATIVE: CASE EVENT DATE: 20150921
